FAERS Safety Report 7383765-9 (Version None)
Quarter: 2011Q1

REPORT INFORMATION
  Report Type: 
  Country: None (occurrence: None)
  Receive Date: 20110330
  Receipt Date: 20110325
  Transmission Date: 20110831
  Serious: Yes (Other)
  Sender: FDA-Public Use
  Company Number: DE-ROCHE-768250

PATIENT
  Age: 80 Year
  Sex: Female

DRUGS (1)
  1. ROACTEMRA [Suspect]
     Route: 065

REACTIONS (1)
  - LYMPHOMA [None]
